FAERS Safety Report 6123499-1 (Version None)
Quarter: 2009Q1

REPORT INFORMATION
  Report Type: 
  Country: None (occurrence: None)
  Receive Date: 20090318
  Receipt Date: 20090309
  Transmission Date: 20090719
  Serious: Yes (Other)
  Sender: FDA-Public Use
  Company Number: US-ABBOTT-09P-163-0561269-00

PATIENT
  Sex: Female
  Weight: 84.444 kg

DRUGS (6)
  1. HUMIRA [Suspect]
     Indication: RHEUMATOID ARTHRITIS
     Dates: start: 20070101
  2. ARAVA [Concomitant]
     Indication: RHEUMATOID ARTHRITIS
  3. FLEXERIL [Concomitant]
     Indication: MUSCULOSKELETAL STIFFNESS
  4. SPIRONOLACTONE [Concomitant]
     Indication: FLUID RETENTION
  5. NORVASC [Concomitant]
     Indication: HIATUS HERNIA
  6. NORVASC [Concomitant]
     Indication: MUSCLE SPASMS

REACTIONS (7)
  - CARPAL TUNNEL SYNDROME [None]
  - CARTILAGE INJURY [None]
  - INFLAMMATION [None]
  - INJECTION SITE ERYTHEMA [None]
  - INJECTION SITE OEDEMA [None]
  - INJECTION SITE WARMTH [None]
  - TENDON DISORDER [None]
